FAERS Safety Report 14678598 (Version 1)
Quarter: 2018Q1

REPORT INFORMATION
  Report Type: Spontaneous
  Country: US (occurrence: US)
  Receive Date: 20180326
  Receipt Date: 20180326
  Transmission Date: 20180509
  Serious: Yes (Other)
  Sender: FDA-Public Use
  Company Number: US-ROCHE-2089709

PATIENT
  Age: 65 Year
  Sex: Female

DRUGS (9)
  1. RUBRACA [Suspect]
     Active Substance: RUCAPARIB CAMSYLATE
     Indication: OVARIAN CANCER
     Route: 048
     Dates: start: 20171214
  2. RUBRACA [Suspect]
     Active Substance: RUCAPARIB CAMSYLATE
     Route: 048
     Dates: start: 20180219
  3. RUBRACA [Suspect]
     Active Substance: RUCAPARIB CAMSYLATE
     Route: 048
     Dates: start: 20180114
  4. AMLODIPINE [Concomitant]
     Active Substance: AMLODIPINE BESYLATE
  5. AVASTIN [Suspect]
     Active Substance: BEVACIZUMAB
     Indication: NEOPLASM MALIGNANT
     Route: 065
  6. LOSARTAN. [Concomitant]
     Active Substance: LOSARTAN
  7. AMBIEN [Concomitant]
     Active Substance: ZOLPIDEM TARTRATE
  8. AVASTIN [Suspect]
     Active Substance: BEVACIZUMAB
     Route: 065
     Dates: start: 20180213
  9. SYNTHROID [Concomitant]
     Active Substance: LEVOTHYROXINE SODIUM

REACTIONS (12)
  - Eye contusion [Unknown]
  - Nausea [Not Recovered/Not Resolved]
  - Asthenia [Recovering/Resolving]
  - Haemoglobin decreased [Not Recovered/Not Resolved]
  - Muscle spasms [Unknown]
  - Fatigue [Recovering/Resolving]
  - Dyspnoea [Unknown]
  - Blood iron decreased [Unknown]
  - Platelet count decreased [Recovered/Resolved]
  - Blood pressure increased [Unknown]
  - Constipation [Unknown]
  - Stress [Unknown]

NARRATIVE: CASE EVENT DATE: 20171214
